FAERS Safety Report 20582746 (Version 38)
Quarter: 2024Q2

REPORT INFORMATION
  Report Type: Spontaneous
  Country: IN (occurrence: IN)
  Receive Date: 20220311
  Receipt Date: 20240624
  Transmission Date: 20240716
  Serious: Yes (Other)
  Sender: FDA-Public Use
  Company Number: IN-PFIZER INC-202200230812

PATIENT
  Age: 56 Year
  Sex: Female
  Weight: 83 kg

DRUGS (23)
  1. PALBOCICLIB [Suspect]
     Active Substance: PALBOCICLIB
     Indication: Breast cancer
     Dosage: 125 MG, CYCLIC (1 TAB 1X/DAY FOR 21 DAYS, FOLLOWED BY GAP FOR 7 DAYS)
     Route: 048
     Dates: start: 20211206, end: 202205
  2. PALBOCICLIB [Suspect]
     Active Substance: PALBOCICLIB
     Dosage: 75 MG, CYCLIC (PER DAY FOR 21 DAYS IN EACH CYCLE)
     Dates: start: 20211206
  3. PALBOCICLIB [Suspect]
     Active Substance: PALBOCICLIB
     Dosage: 125 MG, CYCLIC (1X/DAY)
     Dates: start: 20220228
  4. PALBOCICLIB [Suspect]
     Active Substance: PALBOCICLIB
     Dosage: 125 MG, CYCLIC (1X/DAY)
     Dates: start: 20220404
  5. PALBOCICLIB [Suspect]
     Active Substance: PALBOCICLIB
     Dosage: 100 MG, CYCLIC (1X/DAY)
     Route: 048
     Dates: start: 20220512, end: 20220530
  6. PALBOCICLIB [Suspect]
     Active Substance: PALBOCICLIB
     Dosage: 100 MG, CYCLIC (1X/DAY FOR 21 DAYS)
     Route: 048
     Dates: start: 20220609
  7. PALBOCICLIB [Suspect]
     Active Substance: PALBOCICLIB
     Dosage: 75 MG, CYCLIC (1X/DAY X 21 DAYS THEN 7 DAYS GAP)
     Route: 048
     Dates: start: 20220712
  8. PALBOCICLIB [Suspect]
     Active Substance: PALBOCICLIB
     Dosage: 75 MG, CYCLIC (1X/DAY X 21 DAYS THEN 7 DAYS GAP)
     Route: 048
     Dates: start: 20230511
  9. PALBOCICLIB [Suspect]
     Active Substance: PALBOCICLIB
     Dosage: 75 MG, CYCLIC (1X/DAY X 21 DAYS THEN 7 DAYS GAP)
     Route: 048
     Dates: start: 20230612
  10. PALBOCICLIB [Suspect]
     Active Substance: PALBOCICLIB
     Dosage: 75 MG, CYCLIC (1X/DAY, FOR 21 DAYS THEN 7 DAYS GAP)
     Route: 048
     Dates: start: 20240422
  11. ZOLEDRONIC ACID [Concomitant]
     Active Substance: ZOLEDRONIC ACID
     Dosage: 4 MG
     Route: 042
     Dates: start: 202111
  12. ZOLEDRONIC ACID [Concomitant]
     Active Substance: ZOLEDRONIC ACID
     Dosage: UNK
     Dates: end: 20230306
  13. LETROZOLE [Concomitant]
     Active Substance: LETROZOLE
     Dosage: 2.5 MG, 1X/DAY
     Dates: start: 202111
  14. LETROZOLE [Concomitant]
     Active Substance: LETROZOLE
     Dosage: 2.5 MG, 1X/DAY
     Dates: start: 20230511
  15. LETROZOLE [Concomitant]
     Active Substance: LETROZOLE
     Dosage: 2.5 MG, 1X/DAY
     Dates: start: 20230612
  16. LETROZOLE [Concomitant]
     Active Substance: LETROZOLE
     Dosage: 2.5 MG, 1X/DAY(X 30 DAYS ( ONCE A DAY ))
     Dates: start: 20230717
  17. LETROZOLE [Concomitant]
     Active Substance: LETROZOLE
     Dosage: 2.5 MG, 1X/DAY(X 30 DAYS ( ONCE A DAY ))
     Dates: start: 20240422
  18. ACECLOFENAC [Concomitant]
     Active Substance: ACECLOFENAC
     Dosage: UNK
  19. DEXAMETHASONE [Concomitant]
     Active Substance: DEXAMETHASONE
     Dosage: UNK
  20. CALCIUM CARBONATE\CHOLECALCIFEROL [Concomitant]
     Active Substance: CALCIUM CARBONATE\CHOLECALCIFEROL
     Dosage: 1 TABLET, ONCE A DAY
  21. CALCIUM CARBONATE\CHOLECALCIFEROL [Concomitant]
     Active Substance: CALCIUM CARBONATE\CHOLECALCIFEROL
     Dosage: 1 TABLET, ONCE A DAY
     Dates: start: 20230511
  22. CALCIUM CARBONATE\CHOLECALCIFEROL [Concomitant]
     Active Substance: CALCIUM CARBONATE\CHOLECALCIFEROL
     Dosage: 1 TABLET, ONCE A DAY
     Dates: start: 20230717
  23. LETROZOLE [Concomitant]
     Active Substance: LETROZOLE
     Dosage: 2.5 MG, ONCE A DAY
     Dates: start: 202111

REACTIONS (27)
  - Carcinoembryonic antigen increased [Unknown]
  - Weight fluctuation [Unknown]
  - Monocyte percentage increased [Unknown]
  - Gastric infection [Unknown]
  - Pyrexia [Unknown]
  - Neutropenia [Unknown]
  - Blood pressure increased [Unknown]
  - White blood cell count decreased [Not Recovered/Not Resolved]
  - Neutrophil count decreased [Recovered/Resolved]
  - COVID-19 [Recovered/Resolved]
  - Asthenia [Unknown]
  - Constipation [Unknown]
  - Carbohydrate antigen 15-3 increased [Unknown]
  - Haemoglobin decreased [Unknown]
  - Red blood cell count decreased [Unknown]
  - Dry skin [Unknown]
  - Lymphoedema [Recovering/Resolving]
  - Rash [Unknown]
  - Radiation skin injury [Unknown]
  - Peripheral swelling [Not Recovered/Not Resolved]
  - Gastrointestinal motility disorder [Unknown]
  - Blood urea increased [Unknown]
  - Mean cell volume increased [Unknown]
  - Mean cell haemoglobin increased [Unknown]
  - Lymphocyte count decreased [Unknown]
  - Lymphocyte percentage decreased [Unknown]
  - Haematocrit decreased [Unknown]

NARRATIVE: CASE EVENT DATE: 20220101
